FAERS Safety Report 7638185-6 (Version None)
Quarter: 2011Q3

REPORT INFORMATION
  Report Type: 
  Country: None (occurrence: None)
  Receive Date: 20110727
  Receipt Date: 20110719
  Transmission Date: 20111222
  Serious: Yes (Hospitalization, Other)
  Sender: FDA-Public Use
  Company Number: US-BAYER-2011-013149

PATIENT
  Age: 27 Year
  Sex: Female
  Weight: 86.168 kg

DRUGS (6)
  1. ACCOLATE [Concomitant]
     Dosage: 20 MG, BID
  2. BUSPAR [Concomitant]
     Dosage: 7.5 MG, BID
  3. ZOFRAN [Concomitant]
     Dosage: 4 MG, UNK
  4. LORTAB [Concomitant]
  5. YAZ [Suspect]
     Indication: PRODUCT USED FOR UNKNOWN INDICATION
     Dosage: UNK
     Dates: start: 20071201, end: 20100201
  6. ADVAIR DISKUS 100/50 [Concomitant]

REACTIONS (8)
  - CEREBRAL THROMBOSIS [None]
  - PAIN [None]
  - DIPLOPIA [None]
  - VOMITING [None]
  - INTRACRANIAL VENOUS SINUS THROMBOSIS [None]
  - EMOTIONAL DISTRESS [None]
  - FEAR [None]
  - HEADACHE [None]
